FAERS Safety Report 19639327 (Version 1)
Quarter: 2021Q3

REPORT INFORMATION
  Report Type: Spontaneous
  Country: US (occurrence: US)
  Receive Date: 20210730
  Receipt Date: 20210730
  Transmission Date: 20211014
  Serious: Yes (Disabling)
  Sender: FDA-Public Use
  Company Number: US-SA-2021SA249346

PATIENT
  Age: 78 Year
  Sex: Female

DRUGS (6)
  1. OFEV [Concomitant]
     Active Substance: NINTEDANIB
     Indication: IDIOPATHIC PULMONARY FIBROSIS
  2. DILAUDID [Suspect]
     Active Substance: HYDROMORPHONE HYDROCHLORIDE
  3. AMITRIPTYLINE HCL [Concomitant]
     Active Substance: AMITRIPTYLINE
  4. LASIX [Concomitant]
     Active Substance: FUROSEMIDE
  5. DUPIXENT [Suspect]
     Active Substance: DUPILUMAB
     Indication: DERMATITIS ATOPIC
     Dosage: 300 MG, QOW
     Route: 058
  6. CLARITINE DUO [Concomitant]
     Dosage: 12 HOUR

REACTIONS (7)
  - Arthropod bite [Unknown]
  - Pain in extremity [Unknown]
  - Impaired driving ability [Unknown]
  - Limb injury [Unknown]
  - Peripheral swelling [Unknown]
  - Dyspnoea [Unknown]
  - Joint dislocation [Unknown]
